FAERS Safety Report 6670359-3 (Version None)
Quarter: 2010Q2

REPORT INFORMATION
  Report Type: 
  Country: None (occurrence: None)
  Receive Date: 20100407
  Receipt Date: 20100329
  Transmission Date: 20101027
  Serious: Yes (Other)
  Sender: FDA-Public Use
  Company Number: US-BIOGENIDEC-2009BI002543

PATIENT
  Age: 52 Year
  Sex: Female
  Weight: 61 kg

DRUGS (3)
  1. TYSABRI [Suspect]
     Indication: MULTIPLE SCLEROSIS
     Route: 042
     Dates: start: 20080221
  2. PROVIGIL [Concomitant]
     Indication: FATIGUE
  3. LAMICTAL CD [Concomitant]
     Indication: CONVULSION

REACTIONS (9)
  - BLOOD PRESSURE DECREASED [None]
  - CENTRAL NERVOUS SYSTEM LESION [None]
  - CONVULSION [None]
  - MULTIPLE SCLEROSIS RELAPSE [None]
  - NAUSEA [None]
  - RESPIRATORY TRACT INFECTION [None]
  - UPPER RESPIRATORY TRACT INFECTION [None]
  - VAGINAL INFECTION [None]
  - VOMITING [None]
